FAERS Safety Report 7474849-5 (Version None)
Quarter: 2011Q2

REPORT INFORMATION
  Report Type: 
  Country: None (occurrence: None)
  Receive Date: 20110509
  Receipt Date: 20110509
  Transmission Date: 20111010
  Serious: No
  Sender: FDA-Public Use
  Company Number: None

PATIENT
  Age: 53 Year
  Sex: Female
  Weight: 58.0604 kg

DRUGS (1)
  1. BOTOX [Suspect]

REACTIONS (8)
  - ABDOMINAL DISTENSION [None]
  - NAUSEA [None]
  - EYE PAIN [None]
  - ABNORMAL SENSATION IN EYE [None]
  - ASTHENIA [None]
  - FATIGUE [None]
  - DECREASED ACTIVITY [None]
  - ANXIETY [None]
